FAERS Safety Report 21556256 (Version 2)
Quarter: 2023Q1

REPORT INFORMATION
  Report Type: Spontaneous
  Country: US (occurrence: US)
  Receive Date: 20221104
  Receipt Date: 20230104
  Transmission Date: 20230418
  Serious: Yes (Other)
  Sender: FDA-Public Use
  Company Number: US-SAMSUNG BIOEPIS-SB-2022-27652

PATIENT
  Age: 16 Year
  Sex: Female

DRUGS (5)
  1. INFLIXIMAB [Suspect]
     Active Substance: INFLIXIMAB
     Indication: Iridocyclitis
     Dosage: UNKNOWN
     Route: 065
  2. ADALIMUMAB [Suspect]
     Active Substance: ADALIMUMAB
     Indication: Iridocyclitis
     Dosage: UNKNOWN
     Route: 065
  3. METHOTREXATE [Concomitant]
     Active Substance: METHOTREXATE
     Indication: Iridocyclitis
     Dosage: UNKNOWN
     Route: 065
  4. ABATACEPT [Concomitant]
     Active Substance: ABATACEPT
     Indication: Iridocyclitis
     Dosage: UNKNOWN
     Route: 065
  5. LEFLUNOMIDE [Concomitant]
     Active Substance: LEFLUNOMIDE
     Indication: Iridocyclitis
     Dosage: UNKNOWN
     Route: 065

REACTIONS (8)
  - Glaucoma [Unknown]
  - Iris adhesions [Unknown]
  - Cataract [Unknown]
  - Ocular hypertension [Unknown]
  - Infusion related reaction [Unknown]
  - Drug specific antibody [Unknown]
  - Therapeutic product effect decreased [Unknown]
  - Off label use [Unknown]
